FAERS Safety Report 6066231-2 (Version None)
Quarter: 2009Q1

REPORT INFORMATION
  Report Type: 
  Country: None (occurrence: None)
  Receive Date: 20090205
  Receipt Date: 20090204
  Transmission Date: 20090719
  Serious: Yes (Life-Threatening)
  Sender: FDA-Public Use
  Company Number: IT-PFIZER INC-2008066270

PATIENT

DRUGS (2)
  1. LOMEFLOXACIN HCL [Suspect]
     Route: 048
     Dates: start: 20080803, end: 20080804
  2. CANDESARTAN [Concomitant]

REACTIONS (2)
  - HYPERAEMIA [None]
  - PEAU D'ORANGE [None]
